FAERS Safety Report 15344810 (Version 2)
Quarter: 2018Q3

REPORT INFORMATION
  Report Type: Report from Study
  Country: TR (occurrence: TR)
  Receive Date: 20180903
  Receipt Date: 20180910
  Transmission Date: 20181010
  Serious: Yes (Death)
  Sender: FDA-Public Use
  Company Number: PHHY2018TR087282

PATIENT
  Age: 75 Year
  Sex: Female

DRUGS (2)
  1. LEE011 [Suspect]
     Active Substance: RIBOCICLIB
     Indication: NEOPLASM
     Dosage: 200 MG, TID (3*200MG/G?N)
     Route: 048
     Dates: start: 2018
  2. LEE011 [Suspect]
     Active Substance: RIBOCICLIB
     Indication: LYMPHOMA
     Dosage: 200 MG, TID (3*200MG/G?N)
     Route: 048
     Dates: end: 20180620

REACTIONS (1)
  - Death [Fatal]

NARRATIVE: CASE EVENT DATE: 20180621
